FAERS Safety Report 8523419-6 (Version None)
Quarter: 2012Q3

REPORT INFORMATION
  Report Type: 
  Country: None (occurrence: None)
  Receive Date: 20120720
  Receipt Date: 20120709
  Transmission Date: 20120928
  Serious: Yes (Hospitalization, Other)
  Sender: FDA-Public Use
  Company Number: JP-ACCORD-014088

PATIENT
  Age: 64 Year
  Sex: Male

DRUGS (5)
  1. CYCLOSPORINE [Suspect]
     Indication: IMMUNOSUPPRESSION
  2. TACROLIMUS [Suspect]
     Indication: IMMUNOSUPPRESSION
  3. METHYLPREDNISOLONE [Concomitant]
     Indication: IMMUNOSUPPRESSION
  4. MYCOPHENOLATE MOFETIL [Concomitant]
     Indication: IMMUNOSUPPRESSION
  5. BASILIXIMAB [Concomitant]
     Indication: IMMUNOSUPPRESSION

REACTIONS (3)
  - ENTEROCOLITIS INFECTIOUS [None]
  - FOCAL SEGMENTAL GLOMERULOSCLEROSIS [None]
  - GRAFT DYSFUNCTION [None]
